FAERS Safety Report 5092826-9 (Version None)
Quarter: 2006Q3

REPORT INFORMATION
  Report Type: 
  Country: None (occurrence: None)
  Receive Date: 20060727
  Receipt Date: 20060425
  Transmission Date: 20061208
  Serious: Yes (Other)
  Sender: FDA-Public Use
  Company Number: 2006056948

PATIENT
  Age: 59 Year
  Sex: Female
  Weight: 108.8633 kg

DRUGS (5)
  1. LYRICA [Suspect]
     Indication: NEUROPATHY PERIPHERAL
     Dosage: 225 MG (75 MG, 3 IN 1 D), ORAL
     Route: 048
     Dates: start: 20050101
  2. FUROSEMIDE [Concomitant]
  3. PREMARIN [Concomitant]
  4. CELEBREX [Concomitant]
  5. THYROID TAB [Concomitant]

REACTIONS (5)
  - BLOOD GLUCOSE INCREASED [None]
  - BLOOD TRIGLYCERIDES INCREASED [None]
  - JOINT SWELLING [None]
  - RASH PAPULAR [None]
  - THYROID DISORDER [None]
